FAERS Safety Report 6264486-2 (Version None)
Quarter: 2009Q3

REPORT INFORMATION
  Report Type: 
  Country: None (occurrence: None)
  Receive Date: 20090708
  Receipt Date: 20090626
  Transmission Date: 20100115
  Serious: Yes (Hospitalization, Disabling)
  Sender: FDA-Public Use
  Company Number: OSCN-NO-0901S-0032

PATIENT
  Age: 66 Year
  Sex: Male

DRUGS (8)
  1. OMNISCAN [Suspect]
     Indication: DRUG USE FOR UNKNOWN INDICATION
     Dosage: 40 ML, SINGLE DOSE, I.V.
     Route: 042
     Dates: start: 20051205, end: 20051205
  2. GADOLINIUM (UNSPECIFIED) [Concomitant]
  3. EPOETIN BETA (NEORECORMON) [Concomitant]
  4. CALCIUM ACETATE (PHOS-EX) [Concomitant]
  5. DIALYSIS VITAMINS [Concomitant]
  6. AMLODIPINE [Concomitant]
  7. RAMIPRIL [Concomitant]
  8. PANTOPRAZOL [Concomitant]

REACTIONS (2)
  - DRUG INTERACTION [None]
  - NEPHROGENIC SYSTEMIC FIBROSIS [None]
